FAERS Safety Report 13908645 (Version 2)
Quarter: 2017Q3

REPORT INFORMATION
  Report Type: Spontaneous
  Country: BR (occurrence: BR)
  Receive Date: 20170827
  Receipt Date: 20170908
  Transmission Date: 20171127
  Serious: Yes (Hospitalization)
  Sender: FDA-Public Use
  Company Number: BR-PURDUE-GBR-2017-0048200

PATIENT

DRUGS (1)
  1. OXYCONTIN [Suspect]
     Active Substance: OXYCODONE HYDROCHLORIDE
     Indication: PAIN
     Dosage: UNK
     Route: 048

REACTIONS (3)
  - Toothache [Unknown]
  - Hypoaesthesia oral [Unknown]
  - Eye pain [Unknown]

NARRATIVE: CASE EVENT DATE: 20170816
